FAERS Safety Report 24297450 (Version 1)
Quarter: 2024Q3

REPORT INFORMATION
  Report Type: Other
  Country: CA (occurrence: CA)
  Receive Date: 20240909
  Receipt Date: 20240909
  Transmission Date: 20241017
  Serious: Yes (Other)
  Sender: DENTSPLY
  Company Number: CA-DENTSPLY-2024SCDP000250

PATIENT
  Age: 71 Year
  Sex: Female

DRUGS (1)
  1. LIDOCAINE HYDROCHLORIDE AND EPINEPHRINE BITARTRATE [Suspect]
     Active Substance: EPINEPHRINE BITARTRATE\LIDOCAINE HYDROCHLORIDE
     Indication: Dental operation
     Dosage: UNK DOSE OF 2% LIDOCAINE WITH EPINEPHRINE 1-100,000 (SOLUTION BLOCK/INFILTRATION)

REACTIONS (6)
  - Chest pain [Unknown]
  - Chills [Unknown]
  - Feeling cold [Unknown]
  - Anxiety [Unknown]
  - Dizziness [Unknown]
  - Tremor [Unknown]
